FAERS Safety Report 8629926 (Version 2)
Quarter: 2012Q4

REPORT INFORMATION
  Report Type: 
  Country: DE (occurrence: DE)
  Receive Date: 20120622
  Receipt Date: 20120829
  Transmission Date: 20130627
  Serious: Yes (Death, Other)
  Sender: FDA-Public Use
  Company Number: DE-BRISTOL-MYERS SQUIBB COMPANY-16685984

PATIENT
  Age: 67 Year
  Sex: Male
  Weight: 108 kg

DRUGS (11)
  1. SPRYCEL [Suspect]
     Indication: CHRONIC MYELOID LEUKAEMIA
     Dosage: Dasatinib was interrupted from 16-Apr-12 to 17-Apr-12
     Route: 048
     Dates: start: 20120326
  2. BISOPROLOL [Concomitant]
     Indication: HYPERTENSION
     Dosage: 1/2-0-0
1 df:Bisoprolol 10units NOS
     Route: 048
  3. FUROSEMIDE [Concomitant]
     Indication: HYPERTENSION
     Dosage: 1 df:furosemide 40 
1-1-0
     Route: 048
  4. FUROSEMIDE [Concomitant]
     Indication: PLEURAL EFFUSION
     Dosage: 1 df:furosemide 40 
1-1-0
     Route: 048
  5. RAMIPRIL [Concomitant]
     Indication: HYPERTENSION
     Dosage: ramipril 10 (1-0-0) units NOS
     Route: 048
  6. AMLODIPINE [Concomitant]
     Dosage: amlodipin 10 (1-0-0) units NOS
  7. METFORMIN [Concomitant]
     Dosage: metformin 850 (1-0-1) units NOS
  8. FENOFIBRATE [Concomitant]
     Dosage: fenofibrate 250 (0-0-1) Units NOS
  9. BYETTA [Concomitant]
     Dosage: Byetta (synthetic exenatide, 1-0-1)
  10. ALLOPURINOL [Concomitant]
     Dosage: Allopurinol 300 Heumann tablets (0-0-1) units NOS
  11. AMOXICLAV [Concomitant]
     Indication: PNEUMONIA
     Dosage: Amoclav 875 mg + 125 mg (amoxicillin/clavulanic acid, 1-0-1)

REACTIONS (4)
  - Death [Fatal]
  - Pleural effusion [Unknown]
  - Pneumonia [Unknown]
  - General physical health deterioration [Unknown]
